FAERS Safety Report 11800139 (Version 3)
Quarter: 2016Q1

REPORT INFORMATION
  Report Type: Spontaneous
  Country: IT (occurrence: IT)
  Receive Date: 20151203
  Receipt Date: 20160125
  Transmission Date: 20160525
  Serious: Yes (Hospitalization, Other)
  Sender: FDA-Public Use
  Company Number: IT-GILEAD-2015-0184591

PATIENT
  Age: 57 Year
  Sex: Male

DRUGS (3)
  1. RITUXIMAB [Concomitant]
     Active Substance: RITUXIMAB
     Dosage: 375 MG/M2, UNK
     Route: 042
     Dates: start: 20150712, end: 2015
  2. IDELALISIB [Suspect]
     Active Substance: IDELALISIB
     Dosage: 150 MG, BID
     Route: 048
     Dates: start: 20150729, end: 20150907
  3. IDELALISIB [Suspect]
     Active Substance: IDELALISIB
     Indication: CHRONIC LYMPHOCYTIC LEUKAEMIA
     Dosage: 150 MG, BID
     Route: 048
     Dates: start: 20150712, end: 20150725

REACTIONS (10)
  - Melaena [Unknown]
  - Cough [Unknown]
  - Anaemia [Unknown]
  - Hypoxia [Unknown]
  - Factor VII inhibition [Unknown]
  - Asthenia [Unknown]
  - Dyspnoea [Unknown]
  - Pyrexia [Unknown]
  - Thrombocytopenia [Unknown]
  - Pneumonitis [Recovered/Resolved with Sequelae]

NARRATIVE: CASE EVENT DATE: 201507
